FAERS Safety Report 7736222-1 (Version None)
Quarter: 2011Q3

REPORT INFORMATION
  Report Type: 
  Country: None (occurrence: None)
  Receive Date: 20110908
  Receipt Date: 20101006
  Transmission Date: 20111222
  Serious: Yes (Other)
  Sender: FDA-Public Use
  Company Number: US-BAYER-200939673NA

PATIENT
  Age: 29 Year
  Sex: Female
  Weight: 86 kg

DRUGS (16)
  1. YAZ [Suspect]
     Indication: CONTRACEPTION
  2. BENTYL [Concomitant]
     Dosage: UNK
     Dates: start: 20071127
  3. LEXAPRO [Concomitant]
     Indication: ANXIETY
     Dosage: UNK
     Dates: start: 20060101
  4. YASMIN [Suspect]
     Indication: CONTRACEPTION
     Dosage: UNK
     Dates: start: 20061201, end: 20071201
  5. CLONAZEPAM [Concomitant]
     Indication: ANXIETY
     Dosage: UNK
     Dates: start: 20060101
  6. NSAID'S [Concomitant]
     Indication: PAIN
     Dosage: UNK UNK, PRN
  7. ZOLOFT [Concomitant]
     Indication: DEPRESSION
  8. CLONAZEPAM [Concomitant]
     Indication: DEPRESSION
  9. ANTIBIOTICS [Concomitant]
     Dosage: UNK UNK, PRN
     Dates: start: 20060101
  10. LEXAPRO [Concomitant]
     Indication: DEPRESSION
  11. ALBUTEROL SULFATE AUTOHALER [Concomitant]
  12. PHENERGAN [Concomitant]
     Dosage: UNK
     Dates: start: 20071101
  13. ANTI-ASTHMATICS [Concomitant]
     Indication: ASTHMA
     Dosage: UNK
     Dates: start: 20030101
  14. ZOLOFT [Concomitant]
     Indication: ANXIETY
     Dosage: UNK
     Dates: start: 20060101
  15. IBUPROFEN [Concomitant]
     Dosage: UNK
     Dates: start: 20070101
  16. PREVACID [Concomitant]
     Dosage: UNK
     Dates: start: 20071127

REACTIONS (9)
  - NAUSEA [None]
  - ABDOMINAL PAIN UPPER [None]
  - GALLBLADDER DISORDER [None]
  - CHOLECYSTITIS ACUTE [None]
  - GASTROOESOPHAGEAL REFLUX DISEASE [None]
  - PROCEDURAL PAIN [None]
  - VOMITING [None]
  - CHEST PAIN [None]
  - DYSPEPSIA [None]
